FAERS Safety Report 8448912-6 (Version None)
Quarter: 2012Q2

REPORT INFORMATION
  Report Type: 
  Country: None (occurrence: None)
  Receive Date: 20120619
  Receipt Date: 20120611
  Transmission Date: 20120825
  Serious: Yes (Hospitalization)
  Sender: FDA-Public Use
  Company Number: FR-GLAXOSMITHKLINE-B0681414A

PATIENT
  Sex: Male
  Weight: 70 kg

DRUGS (3)
  1. NEURONTIN [Concomitant]
     Indication: EPILEPSY
     Route: 048
     Dates: start: 20020101
  2. ROPINIROLE HYDROCHLORIDE [Suspect]
     Indication: RESTLESS LEGS SYNDROME
     Dosage: 1MG PER DAY
     Route: 048
     Dates: start: 20100728, end: 20101023
  3. EFFEXOR [Concomitant]
     Dosage: 75MG PER DAY
     Route: 065
     Dates: start: 20100201

REACTIONS (23)
  - DISABILITY [None]
  - OBSESSIVE-COMPULSIVE DISORDER [None]
  - COMPULSIVE SHOPPING [None]
  - MANIA [None]
  - MALAISE [None]
  - FLIGHT OF IDEAS [None]
  - SYNCOPE [None]
  - CONDITION AGGRAVATED [None]
  - HEADACHE [None]
  - CONFUSIONAL STATE [None]
  - CONVULSION [None]
  - PRESYNCOPE [None]
  - ABNORMAL BEHAVIOUR [None]
  - AMNESIA [None]
  - PARTIAL SEIZURES [None]
  - DEPERSONALISATION [None]
  - INSOMNIA [None]
  - TACHYCARDIA [None]
  - DISINHIBITION [None]
  - LOSS OF CONSCIOUSNESS [None]
  - DISTURBANCE IN ATTENTION [None]
  - CHANGE IN SUSTAINED ATTENTION [None]
  - MAJOR DEPRESSION [None]
